FAERS Safety Report 8584055-9 (Version None)
Quarter: 2012Q3

REPORT INFORMATION
  Report Type: 
  Country: None (occurrence: None)
  Receive Date: 20120810
  Receipt Date: 20120726
  Transmission Date: 20120928
  Serious: Yes (Other)
  Sender: FDA-Public Use
  Company Number: US-009507513-1207USA011819

PATIENT

DRUGS (4)
  1. PEGASYS [Suspect]
  2. NEXIUM [Concomitant]
  3. EPOETIN [Concomitant]
  4. VICTRELIS [Suspect]
     Route: 048

REACTIONS (8)
  - ANAEMIA [None]
  - BLOOD PRESSURE DECREASED [None]
  - DIZZINESS [None]
  - HEPATITIS C [None]
  - NAUSEA [None]
  - DYSGEUSIA [None]
  - PAIN [None]
  - DIARRHOEA [None]
